FAERS Safety Report 17631407 (Version 1)
Quarter: 2020Q2

REPORT INFORMATION
  Report Type: Spontaneous
  Country: US (occurrence: US)
  Receive Date: 20200406
  Receipt Date: 20200406
  Transmission Date: 20200713
  Serious: No
  Sender: FDA-Public Use
  Company Number: US-AERIE-US-2020-001180

PATIENT

DRUGS (1)
  1. ROCKLATAN [Suspect]
     Active Substance: LATANOPROST\NETARSUDIL MESYLATE
     Indication: OPEN ANGLE GLAUCOMA
     Dosage: 2 GTT DROPS, (EVERYNIGHT AT BEDTIME) QD
     Route: 047
     Dates: start: 20200108, end: 20200128

REACTIONS (1)
  - Conjunctival haemorrhage [Recovered/Resolved]
